FAERS Safety Report 11593070 (Version 10)
Quarter: 2017Q1

REPORT INFORMATION
  Report Type: Report from Study
  Country: JP (occurrence: JP)
  Receive Date: 20151005
  Receipt Date: 20170331
  Transmission Date: 20170428
  Serious: Yes (Other)
  Sender: FDA-Public Use
  Company Number: JP-PFIZER INC-2015327688

PATIENT
  Age: 14 Month
  Sex: Male
  Weight: 6.5 kg

DRUGS (13)
  1. SIROLIMUS. [Suspect]
     Active Substance: SIROLIMUS
     Indication: LYMPHANGIOLEIOMYOMATOSIS
     Dosage: 0.52 MG, 1X/DAY
     Route: 065
     Dates: start: 20150617, end: 20150630
  2. SIROLIMUS. [Suspect]
     Active Substance: SIROLIMUS
     Indication: HAEMANGIOMA-THROMBOCYTOPENIA SYNDROME
     Dosage: 0.5 MG, DAILY
     Route: 065
     Dates: start: 20150617, end: 20150701
  3. SIROLIMUS. [Suspect]
     Active Substance: SIROLIMUS
     Dosage: 0.5 MG, 2X/DAY
     Route: 065
     Dates: start: 20150702
  4. SIROLIMUS. [Suspect]
     Active Substance: SIROLIMUS
     Dosage: 0.8 MG/M^2 BID
  5. PREDNISOLONE. [Concomitant]
     Active Substance: PREDNISOLONE
     Indication: HAEMANGIOMA-THROMBOCYTOPENIA SYNDROME
     Dosage: UNK
     Route: 048
     Dates: start: 20150911
  6. SIROLIMUS. [Suspect]
     Active Substance: SIROLIMUS
     Dosage: 1 MG, 1X/DAY
     Route: 065
     Dates: start: 20150701, end: 20150819
  7. ASPIRIN /00002701/ [Concomitant]
     Active Substance: ASPIRIN
     Indication: HAEMANGIOMA-THROMBOCYTOPENIA SYNDROME
     Dosage: UNK
     Route: 048
     Dates: start: 20150708
  8. SIROLIMUS. [Suspect]
     Active Substance: SIROLIMUS
     Dosage: 0.7 MG, 1X/DAY
     Route: 065
     Dates: start: 20150819, end: 20150917
  9. SIROLIMUS. [Suspect]
     Active Substance: SIROLIMUS
     Dosage: 0.5 MG, 1X/DAY
     Route: 065
     Dates: start: 20150917, end: 20151222
  10. VINCRISTINE SULFATE. [Concomitant]
     Active Substance: VINCRISTINE SULFATE
     Indication: HAEMANGIOMA-THROMBOCYTOPENIA SYNDROME
     Dosage: UNK
     Route: 065
     Dates: end: 20150213
  11. SIROLIMUS. [Suspect]
     Active Substance: SIROLIMUS
     Dosage: 0.25 MG, 1X/DAY
     Route: 065
     Dates: start: 20151222, end: 20160105
  12. INDERAL [Concomitant]
     Active Substance: PROPRANOLOL HYDROCHLORIDE
     Indication: HAEMANGIOMA-THROMBOCYTOPENIA SYNDROME
     Dosage: UNK
     Route: 048
     Dates: start: 20150910
  13. INCREMIN /00023544/ [Concomitant]
     Dosage: UNK
     Route: 048
     Dates: start: 20150708

REACTIONS (3)
  - Alanine aminotransferase increased [Recovered/Resolved]
  - Hypogammaglobulinaemia [Recovered/Resolved]
  - Aspartate aminotransferase increased [Recovered/Resolved]

NARRATIVE: CASE EVENT DATE: 20150626
